FAERS Safety Report 6163036-9 (Version None)
Quarter: 2009Q2

REPORT INFORMATION
  Report Type: 
  Country: None (occurrence: None)
  Receive Date: 20090421
  Receipt Date: 20090416
  Transmission Date: 20091009
  Serious: Yes (Other)
  Sender: FDA-Public Use
  Company Number: US-JNJCH-2009010685

PATIENT
  Age: 73 Year
  Sex: Female
  Weight: 52.6 kg

DRUGS (3)
  1. COOL MINT LISTERINE [Suspect]
     Indication: ACCIDENTAL EXPOSURE
     Dosage: TEXT:^LARGE AMOUNT SWALLOWED^ IN 2 TIMES
     Route: 048
  2. QUINAPRIL [Concomitant]
     Indication: BLOOD PRESSURE
     Dosage: TEXT:UNSPECIFIED
     Route: 065
  3. LOVASTIN [Concomitant]
     Indication: BLOOD CHOLESTEROL
     Dosage: TEXT:UNSPECIFIED
     Route: 065

REACTIONS (6)
  - ABDOMINAL PAIN UPPER [None]
  - ACCIDENTAL EXPOSURE [None]
  - CHEST PAIN [None]
  - DYSPEPSIA [None]
  - DYSPNOEA [None]
  - THROAT IRRITATION [None]
